FAERS Safety Report 4339865-0 (Version None)
Quarter: 2004Q2

REPORT INFORMATION
  Report Type: 
  Country: None (occurrence: None)
  Receive Date: 20040412
  Receipt Date: 20040401
  Transmission Date: 20050107
  Serious: Yes (Congenital Anomaly)
  Sender: FDA-Public Use
  Company Number: 03P-167-0239076-00

PATIENT
  Age: 1 Day
  Sex: Male
  Weight: 2.5 kg

DRUGS (1)
  1. VALPROATE SODIUM [Suspect]
     Indication: DRUG EXPOSURE DURING PREGNANCY

REACTIONS (11)
  - ABNORMAL BEHAVIOUR [None]
  - ASTHMA [None]
  - CONGENITAL JAW MALFORMATION [None]
  - CONGENITAL NOSE MALFORMATION [None]
  - FACIAL DYSMORPHISM [None]
  - FOETAL VALPROATE SYNDROME [None]
  - FORCEPS DELIVERY [None]
  - HERNIA [None]
  - IRRITABILITY [None]
  - MATERNAL DRUGS AFFECTING FOETUS [None]
  - SLEEP DISORDER [None]
